FAERS Safety Report 17383319 (Version 1)
Quarter: 2020Q1

REPORT INFORMATION
  Report Type: Spontaneous
  Country: US (occurrence: US)
  Receive Date: 20200206
  Receipt Date: 20200206
  Transmission Date: 20200409
  Serious: No
  Sender: FDA-Public Use
  Company Number: US-ABBVIE-19K-163-2981827-00

PATIENT
  Age: 43 Year
  Sex: Female
  Weight: 56.75 kg

DRUGS (8)
  1. MESALAMINE. [Concomitant]
     Active Substance: MESALAMINE
     Indication: PROCTITIS
  2. FOLIC ACID. [Concomitant]
     Active Substance: FOLIC ACID
     Indication: PROCTITIS
  3. WARFARIN [Concomitant]
     Active Substance: WARFARIN
     Indication: METHYLENETETRAHYDROFOLATE REDUCTASE DEFICIENCY
  4. LISINOPRIL. [Concomitant]
     Active Substance: LISINOPRIL
     Indication: HYPERTENSION
  5. VITAMIN D NOS [Concomitant]
     Active Substance: VITAMIN D NOS
     Indication: PROCTITIS
  6. CITALOPRAM [Concomitant]
     Active Substance: CITALOPRAM HYDROBROMIDE
     Indication: ANXIETY
  7. HUMIRA [Suspect]
     Active Substance: ADALIMUMAB
     Indication: PROCTITIS ULCERATIVE
     Route: 058
     Dates: start: 2012
  8. IRON [Concomitant]
     Active Substance: IRON
     Indication: PROCTITIS

REACTIONS (3)
  - Off label use [Not Recovered/Not Resolved]
  - Device issue [Recovered/Resolved]
  - Accidental exposure to product [Recovered/Resolved]

NARRATIVE: CASE EVENT DATE: 2012
